FAERS Safety Report 18131611 (Version 1)
Quarter: 2020Q3

REPORT INFORMATION
  Report Type: Report from Study
  Country: US (occurrence: US)
  Receive Date: 20200810
  Receipt Date: 20200810
  Transmission Date: 20201103
  Serious: Yes (Death, Hospitalization)
  Sender: FDA-Public Use
  Company Number: US-ACTELION-A-US2020-201406

PATIENT
  Sex: Male
  Weight: 99.32 kg

DRUGS (6)
  1. UPTRAVI [Suspect]
     Active Substance: SELEXIPAG
     Dosage: 400 MCG, BID
     Route: 048
  2. COUMADIN [Concomitant]
     Active Substance: WARFARIN SODIUM
  3. UPTRAVI [Suspect]
     Active Substance: SELEXIPAG
     Dosage: 600 MCG, BID
     Route: 048
  4. UPTRAVI [Suspect]
     Active Substance: SELEXIPAG
     Dosage: 200MCG AM, 400MCG PM
     Route: 048
  5. OPSUMIT [Suspect]
     Active Substance: MACITENTAN
     Indication: PULMONARY ARTERIAL HYPERTENSION
     Dosage: 10 MG, QD
     Route: 048
  6. UPTRAVI [Suspect]
     Active Substance: SELEXIPAG
     Indication: PULMONARY ARTERIAL HYPERTENSION
     Dosage: 200 MCG, BID
     Route: 048

REACTIONS (18)
  - Dyspnoea [Unknown]
  - Breath sounds abnormal [Unknown]
  - Diabetes mellitus [Fatal]
  - Headache [Unknown]
  - Pain in extremity [Unknown]
  - Nausea [Unknown]
  - Cough [Unknown]
  - Pulmonary hypertension [Fatal]
  - Oedema peripheral [Unknown]
  - Dyspnoea exertional [Unknown]
  - Vomiting [Unknown]
  - Arthralgia [Unknown]
  - Diarrhoea [Unknown]
  - Renal disorder [Fatal]
  - Obstructive airways disorder [Unknown]
  - Decreased appetite [Unknown]
  - Muscle spasms [Unknown]
  - Product dose omission issue [Unknown]
